FAERS Safety Report 13294223 (Version 1)
Quarter: 2017Q1

REPORT INFORMATION
  Report Type: Spontaneous
  Country: PT (occurrence: PT)
  Receive Date: 20170303
  Receipt Date: 20170303
  Transmission Date: 20170428
  Serious: Yes (Other)
  Sender: FDA-Public Use
  Company Number: PT-TEVA-743979ISR

PATIENT
  Sex: Female
  Weight: 65 kg

DRUGS (3)
  1. PARACETAMOL [Concomitant]
     Active Substance: ACETAMINOPHEN
  2. IBUPROFENO [Concomitant]
     Active Substance: IBUPROFEN
  3. AMOXICILINA + ACIDO CLAVULANICO-RATIOPHARM 500 MG E 125 MG [Suspect]
     Active Substance: AMOXICILLIN\CLAVULANIC ACID
     Indication: TONSILLITIS
     Route: 048
     Dates: start: 20170209

REACTIONS (5)
  - Oral pain [Recovered/Resolved]
  - Face oedema [Recovered/Resolved]
  - Lip swelling [Recovered/Resolved]
  - Vision blurred [Recovered/Resolved]
  - Stomatitis [Recovered/Resolved]

NARRATIVE: CASE EVENT DATE: 20170210
